FAERS Safety Report 8122436-8 (Version None)
Quarter: 2012Q1

REPORT INFORMATION
  Report Type: 
  Country: None (occurrence: None)
  Receive Date: 20120207
  Receipt Date: 20120207
  Transmission Date: 20120608
  Serious: Yes (Other)
  Sender: FDA-Public Use
  Company Number: None

PATIENT
  Age: 85 Year
  Sex: Female
  Weight: 72.5755 kg

DRUGS (1)
  1. VENLAFAXINE [Suspect]
     Dosage: 76MG 1 QD PO
     Route: 048
     Dates: start: 20111225

REACTIONS (2)
  - BALANCE DISORDER [None]
  - DIZZINESS [None]
